FAERS Safety Report 9189358 (Version 1)
Quarter: 2013Q1

REPORT INFORMATION
  Report Type: Spontaneous
  Country: GB (occurrence: GB)
  Receive Date: 20130326
  Receipt Date: 20130326
  Transmission Date: 20140127
  Serious: Yes (Other)
  Sender: FDA-Public Use
  Company Number: PHFR2013GB001854

PATIENT
  Sex: Male

DRUGS (5)
  1. TEGRETOL [Suspect]
     Indication: EPILEPSY
     Dosage: 2 DF, UNK
  2. TEGRETOL [Suspect]
     Dosage: 1 DF, BID
  3. LISINOPRIL [Concomitant]
     Dosage: 20 MG, UNK
  4. DOXAZOCIN [Concomitant]
     Dosage: 4 MG, UNK
  5. SLOW SODIUM [Concomitant]
     Dosage: 800 MG, UNK

REACTIONS (1)
  - Sedation [Unknown]
